FAERS Safety Report 5570237-7 (Version None)
Quarter: 2007Q4

REPORT INFORMATION
  Report Type: 
  Country: None (occurrence: None)
  Receive Date: 20071220
  Receipt Date: 20071211
  Transmission Date: 20080405
  Serious: Yes (Other)
  Sender: FDA-Public Use
  Company Number: US-PFIZER INC-2007105866

PATIENT
  Age: 54 Year
  Sex: Male

DRUGS (1)
  1. CHANTIX [Suspect]

REACTIONS (1)
  - MENTAL DISORDER [None]
